FAERS Safety Report 4997770-0 (Version None)
Quarter: 2006Q2

REPORT INFORMATION
  Report Type: 
  Country: None (occurrence: None)
  Receive Date: 20060508
  Receipt Date: 20060425
  Transmission Date: 20061013
  Serious: Yes (Death)
  Sender: FDA-Public Use
  Company Number: 2006053417

PATIENT
  Age: 59 Year
  Sex: Male
  Weight: 85.2762 kg

DRUGS (7)
  1. LYRICA [Suspect]
     Indication: ILL-DEFINED DISORDER
     Dosage: 50 MG (50 MG, 1 IN 1 D), ORAL
     Route: 048
     Dates: start: 20060413, end: 20060414
  2. NITROGLYCERIN [Concomitant]
  3. TYLENOL W/ CODEINE [Concomitant]
  4. COUMADIN [Concomitant]
  5. NORVASC [Concomitant]
  6. XANAX [Concomitant]
  7. ZOCOR [Concomitant]

REACTIONS (2)
  - CARDIAC ARREST [None]
  - MYOCARDIAL INFARCTION [None]
